FAERS Safety Report 6646899-X (Version None)
Quarter: 2010Q1

REPORT INFORMATION
  Report Type: 
  Country: None (occurrence: None)
  Receive Date: 20100323
  Receipt Date: 20100311
  Transmission Date: 20100710
  Serious: Yes (Hospitalization)
  Sender: FDA-Public Use
  Company Number: PL-WYE-H14110810

PATIENT
  Age: 70 Year
  Sex: Male
  Weight: 98 kg

DRUGS (6)
  1. CONTROLOC [Suspect]
     Indication: GASTRITIS
     Dates: start: 20091215, end: 20100224
  2. CONTROLOC [Suspect]
     Dates: start: 20100225
  3. VITAMIN B6 [Concomitant]
     Dosage: UNKNOWN
  4. MAGNESIUM [Concomitant]
     Dosage: UNKNOWN
  5. BETALOC [Concomitant]
     Dosage: UNKNOWN
  6. AMLODIPINE [Concomitant]
     Dosage: UNKNOWN

REACTIONS (2)
  - ABDOMINAL PAIN UPPER [None]
  - AORTIC ANEURYSM [None]
